FAERS Safety Report 10207342 (Version 1)
Quarter: 2014Q2

REPORT INFORMATION
  Report Type: Spontaneous
  Country: US (occurrence: US)
  Receive Date: 20140530
  Receipt Date: 20140530
  Transmission Date: 20141212
  Serious: No
  Sender: FDA-Public Use
  Company Number: US-GLAXOSMITHKLINE-A1035424A

PATIENT
  Age: 57 Year
  Sex: Female

DRUGS (12)
  1. VENTOLIN [Suspect]
     Indication: PRODUCT USED FOR UNKNOWN INDICATION
     Dosage: 4SPR THREE TIMES PER DAY
     Route: 055
  2. RANITIDINE [Concomitant]
  3. NAPROXEN [Concomitant]
  4. ASPIRIN [Concomitant]
  5. GLIPIZIDE [Concomitant]
  6. LEVO-THYROXIN [Concomitant]
  7. METFORMIN [Concomitant]
  8. SIMVASTATIN [Concomitant]
  9. AMLODIPINE [Concomitant]
  10. LOSARTAN [Concomitant]
  11. OMEPRAZOLE [Concomitant]
  12. TRADJENTA [Concomitant]

REACTIONS (3)
  - Drug ineffective [Not Recovered/Not Resolved]
  - Drug ineffective [Unknown]
  - Product quality issue [Unknown]
